FAERS Safety Report 21893330 (Version 1)
Quarter: 2023Q1

REPORT INFORMATION
  Report Type: Spontaneous
  Country: NL (occurrence: NL)
  Receive Date: 20230121
  Receipt Date: 20230121
  Transmission Date: 20230418
  Serious: Yes (Death, Other)
  Sender: FDA-Public Use
  Company Number: NL-AMGEN-NLDSP2023008920

PATIENT

DRUGS (17)
  1. PANITUMUMAB [Suspect]
     Active Substance: PANITUMUMAB
     Indication: Colorectal cancer metastatic
     Dosage: UNK
     Route: 065
  2. BEVACIZUMAB [Suspect]
     Active Substance: BEVACIZUMAB
     Indication: Colorectal cancer metastatic
     Dosage: UNK
     Route: 065
  3. CETUXIMAB [Suspect]
     Active Substance: CETUXIMAB
     Indication: Colorectal cancer metastatic
     Dosage: UNK
     Route: 065
  4. GEMCITABINE [Concomitant]
     Active Substance: GEMCITABINE
     Dosage: UNK
  5. CARBOPLATIN [Concomitant]
     Active Substance: CARBOPLATIN
     Dosage: UNK
  6. PEMBROLIZUMAB [Concomitant]
     Active Substance: PEMBROLIZUMAB
     Indication: Colorectal cancer metastatic
     Dosage: UNK
  7. OXALIPLATIN [Concomitant]
     Active Substance: OXALIPLATIN
     Indication: Colorectal cancer metastatic
     Dosage: UNK
  8. FLUOROURACIL [Concomitant]
     Active Substance: FLUOROURACIL
     Indication: Colorectal cancer metastatic
     Dosage: UNK
  9. CAPECITABINE [Concomitant]
     Active Substance: CAPECITABINE
     Indication: Colorectal cancer metastatic
     Dosage: UNK
  10. TEGAFUR [Concomitant]
     Active Substance: TEGAFUR
     Indication: Colorectal cancer metastatic
     Dosage: UNK
  11. GIMERACIL [Concomitant]
     Active Substance: GIMERACIL
     Indication: Colorectal cancer metastatic
     Dosage: UNK
  12. OTERACIL [Concomitant]
     Active Substance: OTERACIL
     Indication: Colorectal cancer metastatic
     Dosage: UNK
  13. TRIFLURIDINE [Concomitant]
     Active Substance: TRIFLURIDINE
     Dosage: UNK
  14. TIPIRACIL [Concomitant]
     Active Substance: TIPIRACIL
     Dosage: UNK
  15. IPILIMUMAB [Concomitant]
     Active Substance: IPILIMUMAB
  16. NIVOLUMAB [Concomitant]
     Active Substance: NIVOLUMAB
     Dosage: UNK
  17. IRINOTECAN [Concomitant]
     Active Substance: IRINOTECAN
     Indication: Colorectal cancer metastatic
     Dosage: UNK

REACTIONS (1)
  - Death [Fatal]
